FAERS Safety Report 20319152 (Version 1)
Quarter: 2022Q1

REPORT INFORMATION
  Report Type: Spontaneous
  Country: US (occurrence: US)
  Receive Date: 20220110
  Receipt Date: 20220110
  Transmission Date: 20220423
  Serious: Yes (Hospitalization)
  Sender: FDA-Public Use
  Company Number: US-AMERICAN REGENT INC-2022000052

PATIENT
  Age: 81 Year
  Sex: Male
  Weight: 64.9 kg

DRUGS (4)
  1. LIDOCAINE HYDROCHLORIDE [Suspect]
     Active Substance: LIDOCAINE HYDROCHLORIDE
     Indication: Local anaesthesia
     Dosage: 5 MILLILITER
     Route: 065
     Dates: start: 202102
  2. ROPIVACAINE [Suspect]
     Active Substance: ROPIVACAINE
     Indication: Spinal anaesthesia
     Dosage: 30 MILLILITER
     Route: 065
     Dates: start: 202102
  3. DAPSONE [Suspect]
     Active Substance: DAPSONE
     Indication: Pemphigoid
     Dosage: UNK
     Route: 065
     Dates: start: 202011
  4. FENTANYL [Concomitant]
     Active Substance: FENTANYL
     Indication: Anxiety
     Dosage: 25 MICROGRAM, SINGLE
     Route: 065
     Dates: start: 202102, end: 202102

REACTIONS (1)
  - Methaemoglobinaemia [Recovering/Resolving]

NARRATIVE: CASE EVENT DATE: 20210201
